FAERS Safety Report 7018758-4 (Version None)
Quarter: 2010Q3

REPORT INFORMATION
  Report Type: 
  Country: None (occurrence: None)
  Receive Date: 20100928
  Receipt Date: 20100921
  Transmission Date: 20110219
  Serious: Yes (Hospitalization, Other)
  Sender: FDA-Public Use
  Company Number: CN-BAYER-201039924GPV

PATIENT
  Age: 65 Year
  Sex: Male
  Weight: 70 kg

DRUGS (1)
  1. ULTRAVIST 370 [Suspect]
     Indication: ARTERIOGRAM CORONARY
     Dosage: TOTAL DAILY DOSE: 100 ML
     Route: 042
     Dates: start: 20100919, end: 20100919

REACTIONS (13)
  - BLOOD PRESSURE DECREASED [None]
  - CHEST DISCOMFORT [None]
  - CONVULSION [None]
  - DYSPNOEA [None]
  - FAECAL INCONTINENCE [None]
  - HEART RATE DECREASED [None]
  - LOSS OF CONSCIOUSNESS [None]
  - MYOCARDIAL ISCHAEMIA [None]
  - RENAL ISCHAEMIA [None]
  - RENAL PAIN [None]
  - SHOCK [None]
  - URINARY INCONTINENCE [None]
  - URTICARIA [None]
